FAERS Safety Report 7456646-X (Version None)
Quarter: 2011Q2

REPORT INFORMATION
  Report Type: 
  Country: None (occurrence: None)
  Receive Date: 20110503
  Receipt Date: 20110429
  Transmission Date: 20111010
  Serious: Yes (Hospitalization)
  Sender: FDA-Public Use
  Company Number: US-AMGEN-USASP2011016095

PATIENT
  Age: 90 Year
  Sex: Female

DRUGS (1)
  1. NPLATE [Suspect]
     Indication: IDIOPATHIC THROMBOCYTOPENIC PURPURA
     Dosage: 450 A?G, QWK
     Dates: start: 20100701

REACTIONS (3)
  - ASTHENIA [None]
  - HIP ARTHROPLASTY [None]
  - TIBIA FRACTURE [None]
